FAERS Safety Report 7772132-1 (Version None)
Quarter: 2011Q3

REPORT INFORMATION
  Report Type: 
  Country: None (occurrence: None)
  Receive Date: 20110920
  Receipt Date: 20110907
  Transmission Date: 20111222
  Serious: Yes (Life-Threatening)
  Sender: FDA-Public Use
  Company Number: TCI2011A04403

PATIENT
  Age: 75 Year
  Sex: Male

DRUGS (5)
  1. ACTOS [Suspect]
     Indication: DIABETES MELLITUS
     Dosage: 15 MG (15 MG) PER ORAL
     Route: 048
     Dates: start: 20090914
  2. MICARDIS [Concomitant]
  3. HUMULIN N [Concomitant]
  4. TRICHLORMETHIAZIDE [Concomitant]
  5. ADALAT [Concomitant]

REACTIONS (1)
  - BLADDER CANCER [None]
